FAERS Safety Report 14426146 (Version 1)
Quarter: 2018Q1

REPORT INFORMATION
  Report Type: Spontaneous
  Country: AU (occurrence: AU)
  Receive Date: 20180123
  Receipt Date: 20180123
  Transmission Date: 20180509
  Serious: Yes (Other)
  Sender: FDA-Public Use
  Company Number: AU-PFIZER INC-2018022679

PATIENT
  Sex: Male

DRUGS (1)
  1. LIPITOR [Suspect]
     Active Substance: ATORVASTATIN CALCIUM
     Dosage: 80 MG, UNK

REACTIONS (7)
  - Ocular icterus [Unknown]
  - Renal disorder [Unknown]
  - Chronic fatigue syndrome [Unknown]
  - Dementia [Unknown]
  - Liver disorder [Unknown]
  - Muscle spasms [Unknown]
  - Yellow skin [Unknown]
